FAERS Safety Report 5146694-7 (Version None)
Quarter: 2006Q4

REPORT INFORMATION
  Report Type: 
  Country: None (occurrence: None)
  Receive Date: 20061109
  Receipt Date: 20060131
  Transmission Date: 20070319
  Serious: Yes (Hospitalization)
  Sender: FDA-Public Use
  Company Number: FR-ROCHE-434313

PATIENT
  Age: 44 Year
  Sex: Male

DRUGS (6)
  1. PEG-INTERFERON ALFA 2A (RO 25-8310) [Suspect]
     Route: 058
     Dates: start: 20050216
  2. RIBAVIRIN [Suspect]
     Route: 048
     Dates: start: 20050216
  3. AMANTADINE HCL [Suspect]
     Route: 048
     Dates: start: 20050212
  4. HAVLANE [Concomitant]
     Dosage: TDD REPORTED AS 1/2 CP/DAY
     Dates: start: 20050705
  5. DOLIPRANE [Concomitant]
     Dosage: TDD REPORTED AS 1CP/DAY DRUG REPORTED AS DOLIPRANE 1000
     Dates: start: 20050216
  6. TRANSIPEG [Concomitant]
     Dates: start: 20050123

REACTIONS (1)
  - CHOLECYSTITIS [None]
